FAERS Safety Report 5731977-X (Version None)
Quarter: 2008Q2

REPORT INFORMATION
  Report Type: 
  Country: None (occurrence: None)
  Receive Date: 20080508
  Receipt Date: 20080428
  Transmission Date: 20081010
  Serious: Yes (Disabling, Congenital Anomaly)
  Sender: FDA-Public Use
  Company Number: GB-ABBOTT-07P-167-0359095-00

PATIENT
  Sex: Female

DRUGS (4)
  1. VALPROATE SODIUM [Suspect]
     Indication: DRUG EXPOSURE DURING PREGNANCY
     Route: 064
  2. VALPROATE SODIUM [Suspect]
     Dosage: 600MG IN MORNING AND 800 MG AT NIGHT
     Route: 064
     Dates: start: 19970707
  3. VALPROATE SODIUM [Suspect]
     Route: 064
  4. VALPROATE SODIUM [Suspect]
     Route: 064
     Dates: start: 19971201

REACTIONS (21)
  - CONGENITAL HAND MALFORMATION [None]
  - CONGENITAL HYDROCEPHALUS [None]
  - CONGENITAL JAW MALFORMATION [None]
  - CONGENITAL NOSE MALFORMATION [None]
  - DEVELOPMENTAL DELAY [None]
  - DRUG EXPOSURE DURING PREGNANCY [None]
  - DYSMORPHISM [None]
  - FAECAL INCONTINENCE [None]
  - FOETAL ANTICONVULSANT SYNDROME [None]
  - GASTROOESOPHAGEAL REFLUX DISEASE [None]
  - HYPOTONIA [None]
  - LEARNING DISORDER [None]
  - LIP DISORDER [None]
  - MENINGOMYELOCELE [None]
  - NEUROGENIC BLADDER [None]
  - PETIT MAL EPILEPSY [None]
  - PRECOCIOUS PUBERTY [None]
  - SPEECH DISORDER DEVELOPMENTAL [None]
  - STRABISMUS [None]
  - URINARY INCONTINENCE [None]
  - URINARY TRACT INFECTION [None]
